FAERS Safety Report 18281230 (Version 1)
Quarter: 2020Q3

REPORT INFORMATION
  Report Type: Report from Study
  Country: None (occurrence: MX)
  Receive Date: 20200918
  Receipt Date: 20200918
  Transmission Date: 20201103
  Serious: Yes (Other)
  Sender: FDA-Public Use
  Company Number: MX-ABBVIE-20K-107-3561553-00

PATIENT
  Sex: Female
  Weight: 60 kg

DRUGS (5)
  1. SULFASALAZINE. [Concomitant]
     Active Substance: SULFASALAZINE
     Indication: CROHN^S DISEASE
  2. CALCORT [Concomitant]
     Active Substance: DEFLAZACORT
     Indication: CROHN^S DISEASE
     Route: 048
  3. HUMIRA [Suspect]
     Active Substance: ADALIMUMAB
     Indication: CROHN^S DISEASE
     Route: 058
     Dates: start: 2017
  4. HUMIRA [Suspect]
     Active Substance: ADALIMUMAB
     Route: 058
     Dates: start: 202002, end: 202002
  5. HUMIRA [Suspect]
     Active Substance: ADALIMUMAB
     Route: 058
     Dates: start: 2020

REACTIONS (10)
  - Faecal calprotectin increased [Unknown]
  - Off label use [Recovered/Resolved]
  - Myalgia [Recovering/Resolving]
  - Uterine necrosis [Unknown]
  - Uterine disorder [Unknown]
  - Diarrhoea [Recovered/Resolved]
  - Injection site rash [Recovered/Resolved]
  - Fatigue [Recovering/Resolving]
  - Abdominal rigidity [Recovered/Resolved]
  - Arthralgia [Recovered/Resolved]

NARRATIVE: CASE EVENT DATE: 2017
